FAERS Safety Report 9929251 (Version 1)
Quarter: 2014Q1

REPORT INFORMATION
  Report Type: Spontaneous
  Country: DE (occurrence: None)
  Receive Date: 20140221
  Receipt Date: 20140221
  Transmission Date: 20141002
  Serious: Yes (Other)
  Sender: FDA-Public Use
  Company Number: SYM-2014-17446

PATIENT
  Age: 63 Year
  Sex: Male

DRUGS (2)
  1. FLUOROURACIL (FLUOROURACIL) (INFUSION) (FLUOROURACIL) [Suspect]
     Indication: HYPOPHARYNGEAL CANCER
  2. CARBOPLATIN [Suspect]
     Indication: PRODUCT USED FOR UNKNOWN INDICATION

REACTIONS (2)
  - Angina pectoris [None]
  - Ventricular tachycardia [None]
